FAERS Safety Report 7023533 (Version 3)
Quarter: 2014Q4

REPORT INFORMATION
  Report Type: Spontaneous
  Country: FR (occurrence: FR)
  Receive Date: 20090615
  Receipt Date: 20141119
  Transmission Date: 20150529
  Serious: Yes (Death, Hospitalization, Other)
  Sender: FDA-Public Use
  Company Number: FR-ELI_LILLY_AND_COMPANY-FR200906000324

PATIENT
  Age: 59 Year
  Sex: Female

DRUGS (9)
  1. PROZAC [Suspect]
     Active Substance: FLUOXETINE HYDROCHLORIDE
     Indication: DEPRESSION
     Dosage: UNK, UNK
     Route: 048
     Dates: start: 200803
  2. PREVISCAN                          /00261401/ [Suspect]
     Active Substance: PENTOXIFYLLINE
     Indication: PRODUCT USED FOR UNKNOWN INDICATION
     Dosage: UNK, UNKNOWN
     Route: 065
  3. NEULEPTIL [Concomitant]
     Active Substance: PERICIAZINE
     Dosage: UNK, UNK
     Dates: start: 200803
  4. ART 50 [Concomitant]
     Active Substance: DIACEREIN
     Dosage: UNK, UNK
     Route: 048
     Dates: start: 200803
  5. LEVOTHYROX [Concomitant]
     Active Substance: LEVOTHYROXINE
     Dosage: UNK, UNK
     Dates: start: 200803
  6. TAHOR [Concomitant]
     Active Substance: ATORVASTATIN CALCIUM
     Dosage: UNK, UNK
     Dates: start: 200803
  7. MEDIATOR [Suspect]
     Active Substance: BENFLUOREX
     Indication: DIABETES MELLITUS
     Dosage: 150 MG, UNK
     Route: 048
     Dates: start: 1998, end: 2008
  8. LAROXYL [Concomitant]
     Active Substance: AMITRIPTYLINE
     Dosage: UNK, UNK
     Dates: start: 200803
  9. NOCTRAN 10 [Concomitant]
     Active Substance: ACEPROMAZINE\ACEPROMETAZINE\CLORAZEPATE DIPOTASSIUM
     Dosage: 10 MG, UNK
     Route: 048
     Dates: start: 200803

REACTIONS (33)
  - Ventricular failure [Unknown]
  - Aortic valve incompetence [Not Recovered/Not Resolved]
  - Pulmonary hypertension [Recovered/Resolved]
  - Dyspnoea [Not Recovered/Not Resolved]
  - International normalised ratio increased [Unknown]
  - Acquired diaphragmatic eventration [Unknown]
  - Muscle haemorrhage [Unknown]
  - Pneumonia [Unknown]
  - Haematoma [Unknown]
  - Internal haemorrhage [Fatal]
  - Cardiac arrest [Fatal]
  - Asthenia [Unknown]
  - Melaena [Unknown]
  - Pain in extremity [Unknown]
  - Respiratory disorder [Unknown]
  - Normochromic normocytic anaemia [Unknown]
  - Suture rupture [Unknown]
  - Gait disturbance [Unknown]
  - Mitral valve incompetence [Recovered/Resolved with Sequelae]
  - Pulmonary arterial hypertension [Unknown]
  - International normalised ratio increased [Unknown]
  - Cardiac failure [Fatal]
  - Left ventricular hypertrophy [Unknown]
  - Restrictive pulmonary disease [Not Recovered/Not Resolved]
  - Cardiomegaly [Unknown]
  - Arthralgia [Unknown]
  - Mitral valve disease [Recovered/Resolved with Sequelae]
  - Pleural effusion [Recovered/Resolved with Sequelae]
  - Ascites [Unknown]
  - Peripheral swelling [Unknown]
  - Endocardial fibrosis [Unknown]
  - Haematoma [Unknown]
  - Back pain [Unknown]

NARRATIVE: CASE EVENT DATE: 200803
